FAERS Safety Report 12500355 (Version 6)
Quarter: 2021Q1

REPORT INFORMATION
  Report Type: Spontaneous
  Country: US (occurrence: US)
  Receive Date: 20160627
  Receipt Date: 20210301
  Transmission Date: 20210419
  Serious: Yes (Other)
  Sender: FDA-Public Use
  Company Number: US-PFIZER INC-2016314201

PATIENT
  Age: 72 Year
  Sex: Female
  Weight: 61.22 kg

DRUGS (1)
  1. XELJANZ XR [Suspect]
     Active Substance: TOFACITINIB CITRATE
     Indication: RHEUMATOID ARTHRITIS
     Dosage: 11 MG, 1X/DAY
     Route: 048
     Dates: end: 20180430

REACTIONS (9)
  - Illness [Recovered/Resolved]
  - Skin laceration [Recovered/Resolved]
  - Weight decreased [Unknown]
  - Nosocomial infection [Recovered/Resolved]
  - Fall [Recovered/Resolved]
  - Muscle spasms [Unknown]
  - Wrist fracture [Recovered/Resolved]
  - Intentional dose omission [Unknown]
  - Mental fatigue [Unknown]

NARRATIVE: CASE EVENT DATE: 20171021
